FAERS Safety Report 10023370 (Version 1)
Quarter: 2014Q1

REPORT INFORMATION
  Report Type: Report from Study
  Country: CL (occurrence: CL)
  Receive Date: 20140320
  Receipt Date: 20140320
  Transmission Date: 20141002
  Serious: Yes (Other)
  Sender: FDA-Public Use
  Company Number: CL-ROCHE-1362811

PATIENT
  Age: 57 Year
  Sex: Female
  Weight: 58 kg

DRUGS (1)
  1. XELODA [Suspect]
     Indication: BREAST CANCER
     Dosage: 14-DAY-CYCLE?LAST DOSES WAS ON 26/FEB/2014.
     Route: 048
     Dates: start: 20131214

REACTIONS (2)
  - Pulmonary mass [Not Recovered/Not Resolved]
  - Drug ineffective [Unknown]
